FAERS Safety Report 4268884-8 (Version None)
Quarter: 2004Q1

REPORT INFORMATION
  Report Type: 
  Country: None (occurrence: None)
  Receive Date: 20040108
  Receipt Date: 20031230
  Transmission Date: 20041129
  Serious: Yes (Hospitalization, Other)
  Sender: FDA-Public Use
  Company Number: 2003192223US

PATIENT
  Age: 56 Year
  Sex: Male

DRUGS (4)
  1. ZYVOX [Suspect]
     Dosage: 600 MG, BID
  2. HYDRYLLIN (DIPHENDHYDRAMINE, AMMONIUM CHLORIDE, SODIUM CITRATE) SOLUTI [Suspect]
     Indication: PRURITUS
     Dosage: SEE IMAGE
     Route: 042
  3. METRONIDAZOLE [Concomitant]
  4. AZTREONAM (AZTREONAM) [Concomitant]

REACTIONS (10)
  - ABNORMAL BEHAVIOUR [None]
  - AGGRESSION [None]
  - DELIRIUM [None]
  - DRUG INTERACTION [None]
  - EYELID OEDEMA [None]
  - HALLUCINATIONS, MIXED [None]
  - PARANOIA [None]
  - PSYCHOMOTOR HYPERACTIVITY [None]
  - TACHYCARDIA [None]
  - VASCULITIS [None]
